FAERS Safety Report 7361205-3 (Version None)
Quarter: 2011Q1

REPORT INFORMATION
  Report Type: 
  Country: None (occurrence: None)
  Receive Date: 20110318
  Receipt Date: 20110217
  Transmission Date: 20110831
  Serious: Yes (Hospitalization, Disabling)
  Sender: FDA-Public Use
  Company Number: MX-SANOFI-AVENTIS-2011SA015333

PATIENT
  Age: 66 Year
  Sex: Male

DRUGS (4)
  1. INSULIN GLARGINE [Suspect]
     Indication: TYPE 2 DIABETES MELLITUS
     Route: 058
     Dates: start: 20070101, end: 20070101
  2. INSULIN GLARGINE [Suspect]
     Route: 058
     Dates: start: 20090101, end: 20090101
  3. ALL OTHER THERAPEUTIC PRODUCTS [Concomitant]
  4. INSULIN GLARGINE [Suspect]
     Route: 058
     Dates: start: 20070101, end: 20090101

REACTIONS (2)
  - HYPERGLYCAEMIA [None]
  - LOCALISED INFECTION [None]
